FAERS Safety Report 18465691 (Version 1)
Quarter: 2020Q4

REPORT INFORMATION
  Report Type: Spontaneous
  Country: US (occurrence: US)
  Receive Date: 20201104
  Receipt Date: 20201104
  Transmission Date: 20210114
  Serious: Yes (Hospitalization, Other)
  Sender: FDA-Public Use
  Company Number: US-NAPPMUNDI-USA-2020-0155310

PATIENT
  Sex: Male

DRUGS (1)
  1. OXYCONTIN [Suspect]
     Active Substance: OXYCODONE HYDROCHLORIDE
     Indication: COMPLEX REGIONAL PAIN SYNDROME
     Dosage: 10 MG, TID
     Route: 048
     Dates: end: 2017

REACTIONS (13)
  - Post-traumatic stress disorder [Unknown]
  - Social avoidant behaviour [Unknown]
  - Anxiety [Unknown]
  - Mental disorder [Unknown]
  - Suicide attempt [Recovered/Resolved with Sequelae]
  - Cerebral disorder [Unknown]
  - Suicidal ideation [Unknown]
  - Insomnia [Unknown]
  - Depression [Unknown]
  - Drug dependence [Unknown]
  - Decreased interest [Unknown]
  - Hypertension [Unknown]
  - Emotional distress [Unknown]

NARRATIVE: CASE EVENT DATE: 20170302
